FAERS Safety Report 17412977 (Version 1)
Quarter: 2020Q1

REPORT INFORMATION
  Report Type: Spontaneous
  Country: US (occurrence: US)
  Receive Date: 20200212
  Receipt Date: 20200212
  Transmission Date: 20200409
  Serious: No
  Sender: FDA-Public Use
  Company Number: None

PATIENT
  Age: 56 Year
  Sex: Female

DRUGS (4)
  1. FLUOXETINE 40MG [Concomitant]
     Active Substance: FLUOXETINE HYDROCHLORIDE
     Dates: start: 20200128
  2. METHYLPRED 4MG [Concomitant]
     Dates: start: 20200206
  3. SIMPONI [Suspect]
     Active Substance: GOLIMUMAB
     Indication: ARTHRITIS
     Dosage: ?          OTHER FREQUENCY:28 DAYS;OTHER ROUTE:INTO THE SKIN?
     Dates: start: 20190423
  4. AMLODIPINE 2.5MG [Concomitant]
     Active Substance: AMLODIPINE BESYLATE
     Dates: start: 20200121

REACTIONS (2)
  - Inappropriate schedule of product administration [None]
  - Pain [None]
